FAERS Safety Report 5469831-3 (Version None)
Quarter: 2007Q3

REPORT INFORMATION
  Report Type: 
  Country: None (occurrence: None)
  Receive Date: 20070927
  Receipt Date: 20070702
  Transmission Date: 20080115
  Serious: Yes (Other)
  Sender: FDA-Public Use
  Company Number: US-BRISTOL-MYERS SQUIBB COMPANY-13832373

PATIENT
  Sex: Female
  Weight: 75 kg

DRUGS (1)
  1. SPRYCEL [Suspect]
     Dates: start: 20070601

REACTIONS (1)
  - PNEUMONIA PRIMARY ATYPICAL [None]
